FAERS Safety Report 17446736 (Version 1)
Quarter: 2020Q1

REPORT INFORMATION
  Report Type: Spontaneous
  Country: FR (occurrence: FR)
  Receive Date: 20200221
  Receipt Date: 20200221
  Transmission Date: 20200409
  Serious: Yes (Hospitalization)
  Sender: FDA-Public Use
  Company Number: NVSC2020FR042023

PATIENT
  Age: 33 Year
  Sex: Female
  Weight: 66 kg

DRUGS (5)
  1. LOXAPAC [Suspect]
     Active Substance: LOXAPINE
     Indication: SUICIDE ATTEMPT
     Dosage: 7 DF, (TOTAL)
     Route: 048
     Dates: start: 20180425, end: 20180425
  2. TEGRETOL [Suspect]
     Active Substance: CARBAMAZEPINE
     Indication: SUICIDE ATTEMPT
     Dosage: 7 DF, (TOTAL)
     Route: 048
     Dates: start: 20180425, end: 20180425
  3. EPITOMAX [Suspect]
     Active Substance: TOPIRAMATE
     Indication: SUICIDE ATTEMPT
     Dosage: 7 DF, (TOTAL)
     Route: 048
     Dates: start: 20180425, end: 20180425
  4. LORAZEPAM. [Suspect]
     Active Substance: LORAZEPAM
     Indication: SUICIDE ATTEMPT
     Dosage: 52.5 MG (TOTAL)
     Route: 048
     Dates: start: 20180425, end: 20180425
  5. VENLAFAXINE [Suspect]
     Active Substance: VENLAFAXINE HYDROCHLORIDE
     Indication: SUICIDE ATTEMPT
     Dosage: 1575 MG (TOTAL)
     Route: 048
     Dates: start: 20180425, end: 20180425

REACTIONS (4)
  - Drug level increased [Recovered/Resolved]
  - Benzodiazepine drug level increased [Recovered/Resolved]
  - Toxicity to various agents [Recovered/Resolved]
  - Coma [Recovered/Resolved]

NARRATIVE: CASE EVENT DATE: 20180425
